FAERS Safety Report 14655436 (Version 3)
Quarter: 2021Q2

REPORT INFORMATION
  Report Type: Spontaneous
  Country: FR (occurrence: FR)
  Receive Date: 20180319
  Receipt Date: 20210520
  Transmission Date: 20210716
  Serious: Yes (Hospitalization, Disabling, Congenital Anomaly, Other)
  Sender: FDA-Public Use
  Company Number: FR-ABBVIE-18P-056-2284846-00

PATIENT
  Age: 9 Year
  Sex: Female

DRUGS (5)
  1. DEPAKINE CHRONO [Suspect]
     Active Substance: VALPROATE SODIUM
     Indication: MATERNAL EXPOSURE TIMING UNSPECIFIED
     Route: 064
  2. ANTIBIOTICS [Concomitant]
     Active Substance: UNSPECIFIED INGREDIENT
     Indication: UPPER RESPIRATORY TRACT INFECTION
  3. ANTIBIOTICS [Concomitant]
     Active Substance: UNSPECIFIED INGREDIENT
     Indication: UPPER RESPIRATORY TRACT INFECTION
  4. ATARAX [Concomitant]
     Active Substance: HYDROXYZINE HYDROCHLORIDE
     Indication: AUTISM SPECTRUM DISORDER
     Route: 065
  5. ANTIBIOTICS [Concomitant]
     Active Substance: UNSPECIFIED INGREDIENT
     Indication: UPPER RESPIRATORY TRACT INFECTION
     Route: 065

REACTIONS (32)
  - Dysmorphism [Unknown]
  - Rhinitis [Unknown]
  - Behaviour disorder [Unknown]
  - Ear disorder [Unknown]
  - Ear infection [Unknown]
  - Bronchitis [Unknown]
  - Tracheitis [Unknown]
  - Dysphagia [Unknown]
  - Emotional disorder [Not Recovered/Not Resolved]
  - Decreased appetite [Not Recovered/Not Resolved]
  - Echopraxia [Not Recovered/Not Resolved]
  - Anger [Unknown]
  - Nasopharyngitis [Unknown]
  - Astigmatism [Not Recovered/Not Resolved]
  - Myopia [Not Recovered/Not Resolved]
  - Anxiety [Not Recovered/Not Resolved]
  - Nasal disorder [Unknown]
  - Autism spectrum disorder [Not Recovered/Not Resolved]
  - Language disorder [Not Recovered/Not Resolved]
  - Echolalia [Unknown]
  - Speech disorder developmental [Not Recovered/Not Resolved]
  - Foetal exposure during pregnancy [Unknown]
  - Intellectual disability [Unknown]
  - Developmental delay [Unknown]
  - Pasteurella infection [Unknown]
  - Tonsillitis [Unknown]
  - Vertigo [Unknown]
  - Exposure via breast milk [Unknown]
  - Psychotic disorder [Unknown]
  - Oropharyngeal discomfort [Unknown]
  - Upper respiratory tract infection [Unknown]
  - Personal relationship issue [Not Recovered/Not Resolved]

NARRATIVE: CASE EVENT DATE: 201109
